FAERS Safety Report 6068136-X (Version None)
Quarter: 2009Q1

REPORT INFORMATION
  Report Type: 
  Country: None (occurrence: None)
  Receive Date: 20090206
  Receipt Date: 20090130
  Transmission Date: 20090719
  Serious: Yes (Hospitalization)
  Sender: FDA-Public Use
  Company Number: FR-ASTRAZENECA-2009CG00304

PATIENT
  Age: 21405 Day
  Sex: Female

DRUGS (5)
  1. ATACAND [Suspect]
     Route: 048
     Dates: start: 20090105, end: 20090114
  2. URSOLVAN [Concomitant]
  3. TANAKAN [Concomitant]
  4. DI-HYDAN [Concomitant]
  5. KARDEGIC [Concomitant]

REACTIONS (1)
  - CYTOLYTIC HEPATITIS [None]
